FAERS Safety Report 13958735 (Version 2)
Quarter: 2017Q4

REPORT INFORMATION
  Report Type: Spontaneous
  Country: CA (occurrence: CA)
  Receive Date: 20170911
  Receipt Date: 20171006
  Transmission Date: 20180320
  Serious: Yes (Other)
  Sender: FDA-Public Use
  Company Number: CA-JNJFOC-20170900810

PATIENT
  Age: 52 Year
  Sex: Female
  Weight: 59.6 kg

DRUGS (3)
  1. ASA [Suspect]
     Active Substance: ASPIRIN
     Indication: PRODUCT USED FOR UNKNOWN INDICATION
     Route: 065
     Dates: start: 2017, end: 20170822
  2. INVEGA TRINZA [Suspect]
     Active Substance: PALIPERIDONE PALMITATE
     Indication: THINKING ABNORMAL
     Route: 030
     Dates: start: 20170531, end: 20170724
  3. BUPROPION. [Concomitant]
     Active Substance: BUPROPION
     Indication: PRODUCT USED FOR UNKNOWN INDICATION
     Route: 065

REACTIONS (6)
  - Alopecia [Recovering/Resolving]
  - Constipation [Recovering/Resolving]
  - Product use in unapproved indication [Unknown]
  - Anaphylactic shock [Recovering/Resolving]
  - Off label use [Unknown]
  - Weight decreased [Recovering/Resolving]

NARRATIVE: CASE EVENT DATE: 20170531
